FAERS Safety Report 8479534-9 (Version None)
Quarter: 2012Q2

REPORT INFORMATION
  Report Type: 
  Country: None (occurrence: None)
  Receive Date: 20120629
  Receipt Date: 20120619
  Transmission Date: 20120825
  Serious: Yes (Life-Threatening)
  Sender: FDA-Public Use
  Company Number: IT-JNJFOC-20120610830

PATIENT

DRUGS (2)
  1. HALOPERIDOL [Suspect]
     Indication: DYSTONIA
     Route: 065
  2. ACETAZOLAMIDE [Suspect]
     Indication: DYSTONIA
     Route: 065

REACTIONS (1)
  - DYSTONIA [None]
